FAERS Safety Report 4428397-7 (Version None)
Quarter: 2004Q3

REPORT INFORMATION
  Report Type: 
  Country: None (occurrence: None)
  Receive Date: 20040813
  Receipt Date: 20040730
  Transmission Date: 20050211
  Serious: Yes (Hospitalization)
  Sender: FDA-Public Use
  Company Number: CERZ-10592

PATIENT
  Age: 26 Month
  Sex: Female
  Weight: 7 kg

DRUGS (5)
  1. CEREZYME [Suspect]
     Indication: GAUCHER'S DISEASE
     Dosage: 800 UNITS Q2WKS IV
     Route: 042
     Dates: start: 20030813
  2. VALPROATE SODIUM [Concomitant]
  3. CLOBAZAM [Concomitant]
  4. AMBROXOL HYDROCHLORIDE [Concomitant]
  5. CARBOCYSTEINE [Concomitant]

REACTIONS (4)
  - BRONCHITIS ACUTE [None]
  - OPISTHOTONUS [None]
  - PNEUMONIA [None]
  - RESPIRATORY FAILURE [None]
